FAERS Safety Report 7933115-1 (Version None)
Quarter: 2011Q4

REPORT INFORMATION
  Report Type: 
  Country: None (occurrence: None)
  Receive Date: 20111121
  Receipt Date: 20111121
  Transmission Date: 20120403
  Serious: Yes (Hospitalization)
  Sender: FDA-Public Use
  Company Number: None

PATIENT
  Age: 61 Year
  Sex: Male
  Weight: 90.5 kg

DRUGS (3)
  1. SOLIRIS [Suspect]
     Indication: PROPHYLAXIS AGAINST TRANSPLANT REJECTION
     Dosage: 1200 MG ONCE IV; 900 MG TWICE IV
     Route: 042
     Dates: start: 20111110
  2. SOLIRIS [Suspect]
     Indication: PROPHYLAXIS AGAINST TRANSPLANT REJECTION
     Dosage: 1200 MG ONCE IV; 900 MG TWICE IV
     Route: 042
     Dates: start: 20111103
  3. SOLIRIS [Suspect]
     Indication: PROPHYLAXIS AGAINST TRANSPLANT REJECTION
     Dosage: 1200 MG ONCE IV; 900 MG TWICE IV
     Route: 042
     Dates: start: 20111104

REACTIONS (1)
  - TRANSPLANT REJECTION [None]
